FAERS Safety Report 6255930-5 (Version None)
Quarter: 2009Q3

REPORT INFORMATION
  Report Type: 
  Country: None (occurrence: None)
  Receive Date: 20090706
  Receipt Date: 20070514
  Transmission Date: 20100115
  Serious: Yes (Other)
  Sender: FDA-Public Use
  Company Number: US-ASTRAZENECA-2006UW11461

PATIENT
  Age: 19586 Day
  Sex: Female
  Weight: 142.4 kg

DRUGS (13)
  1. SEROQUEL [Suspect]
     Indication: MENTAL DISORDER
     Dosage: 25-100 MG
     Route: 048
     Dates: start: 20040624
  2. HALDOL [Concomitant]
     Dates: start: 20050328
  3. RISPERDAL [Concomitant]
     Dates: start: 20050516
  4. ZYPREXA [Concomitant]
     Dates: start: 20050101
  5. TRAZODONE HCL [Concomitant]
  6. EFFEXOR XR [Concomitant]
     Dosage: 150-225 MG
     Route: 048
     Dates: start: 20060522
  7. RELPAX [Concomitant]
     Indication: MIGRAINE
     Route: 048
     Dates: start: 20051107
  8. GLYBURIDE [Concomitant]
     Dosage: 1.25-5 MG
     Route: 048
     Dates: start: 20040521
  9. LIPITOR [Concomitant]
     Route: 048
     Dates: start: 20051107
  10. FOSINOPRIL SODIUM [Concomitant]
     Route: 048
     Dates: start: 20051107
  11. LEXAPRO [Concomitant]
     Dosage: 10-20 MG
     Route: 048
     Dates: start: 20040521
  12. MAXZIDE [Concomitant]
     Indication: SWELLING
     Dosage: 37.5/25 MG
     Route: 048
     Dates: start: 20051114
  13. TOPROL-XL [Concomitant]
     Route: 048
     Dates: start: 20060522

REACTIONS (3)
  - DIABETES MELLITUS [None]
  - DIABETES MELLITUS INADEQUATE CONTROL [None]
  - DIABETIC NEUROPATHY [None]
